FAERS Safety Report 7063590-9 (Version None)
Quarter: 2010Q4

REPORT INFORMATION
  Report Type: 
  Country: None (occurrence: None)
  Receive Date: 20101026
  Receipt Date: 20100805
  Transmission Date: 20110411
  Serious: No
  Sender: FDA-Public Use
  Company Number: US-ABBOTT-10P-163-0662634-00

PATIENT
  Sex: Female
  Weight: 68.1 kg

DRUGS (2)
  1. LUPRON DEPOT [Suspect]
     Indication: ENDOMETRIOSIS
     Dates: start: 20100601
  2. NORETHINDRONE ACETATE [Concomitant]
     Indication: DRUG THERAPY
     Dates: start: 20100601

REACTIONS (4)
  - ARTHRALGIA [None]
  - DECREASED APPETITE [None]
  - DRUG INEFFECTIVE [None]
  - NAUSEA [None]
